FAERS Safety Report 7351070-2 (Version None)
Quarter: 2011Q1

REPORT INFORMATION
  Report Type: 
  Country: None (occurrence: None)
  Receive Date: 20110314
  Receipt Date: 20110210
  Transmission Date: 20110831
  Serious: Yes (Hospitalization, Other)
  Sender: FDA-Public Use
  Company Number: US-BAYER-201040582NA

PATIENT
  Sex: Female
  Weight: 58.957 kg

DRUGS (19)
  1. YAZ [Suspect]
     Indication: CONTRACEPTION
     Route: 048
     Dates: start: 20060601, end: 20100501
  2. LYRICA [Concomitant]
     Dosage: 75 MG, UNK
     Route: 048
     Dates: start: 20090101
  3. VITAMIN B12 [Concomitant]
     Route: 048
  4. VOLTAREN [Concomitant]
     Route: 048
  5. MILNACIPRAN [Concomitant]
     Dosage: UNK
     Dates: start: 20100101
  6. YASMIN [Suspect]
     Indication: CONTRACEPTION
     Route: 048
     Dates: start: 20060601, end: 20100501
  7. CLONAZEPAM [Concomitant]
     Route: 048
  8. VITAMIN D [Concomitant]
     Route: 048
  9. FLEXERIL [Concomitant]
     Dosage: 10 MG, UNK
     Route: 048
  10. IMITREX [Concomitant]
     Dosage: 25 MG, UNK
     Route: 048
     Dates: start: 20090101
  11. DIAZEPAM [Concomitant]
     Dosage: 2 MG, UNK
     Route: 048
  12. CYCLOBENZAPRINE [Concomitant]
     Dosage: UNK
     Dates: start: 20100101
  13. VICODIN [Concomitant]
     Dosage: 500 MG, UNK
     Route: 048
  14. ANTIBIOTICS [Concomitant]
  15. PROCARDIA [Concomitant]
     Dosage: UNK
     Dates: start: 20100101
  16. IBUPROFEN [Concomitant]
     Dosage: 200 MG, UNK
     Route: 048
  17. YAZ [Suspect]
     Indication: PREMENSTRUAL SYNDROME
  18. SYNTHROID [Concomitant]
     Indication: THYROID DISORDER
     Dosage: 100 MCG/24HR, UNK
     Route: 048
     Dates: start: 20060101
  19. SUMATRIPTAN SUCCINATE [Concomitant]
     Route: 048

REACTIONS (19)
  - CHEST PAIN [None]
  - PALPITATIONS [None]
  - DECREASED APPETITE [None]
  - PLEURITIC PAIN [None]
  - THROMBOSIS [None]
  - PAIN [None]
  - DISCOMFORT [None]
  - TACHYCARDIA [None]
  - NAUSEA [None]
  - CHILLS [None]
  - INFLAMMATION [None]
  - DECREASED ACTIVITY [None]
  - HEART RATE INCREASED [None]
  - DYSPNOEA [None]
  - PULMONARY EMBOLISM [None]
  - DEPRESSED MOOD [None]
  - HYPERHIDROSIS [None]
  - OXYGEN SATURATION DECREASED [None]
  - NON-CARDIAC CHEST PAIN [None]
